FAERS Safety Report 4561109-5 (Version None)
Quarter: 2005Q1

REPORT INFORMATION
  Report Type: 
  Country: None (occurrence: None)
  Receive Date: 20050121
  Receipt Date: 20041227
  Transmission Date: 20050727
  Serious: Yes (Death, Other)
  Sender: FDA-Public Use
  Company Number: 2004-00977

PATIENT
  Age: 48 Year
  Sex: Male
  Weight: 200 kg

DRUGS (4)
  1. INTEGRILIN [Suspect]
     Indication: ACUTE CORONARY SYNDROME
     Dosage: SEE IMAGE
     Route: 042
     Dates: start: 20041016, end: 20041016
  2. INTEGRILIN [Suspect]
     Indication: ACUTE CORONARY SYNDROME
     Dosage: SEE IMAGE
     Route: 042
     Dates: start: 20041016, end: 20041018
  3. HEPARIN [Concomitant]
  4. ASPIRIN [Concomitant]

REACTIONS (3)
  - LUNG INFILTRATION [None]
  - OESOPHAGEAL CANCER METASTATIC [None]
  - RESPIRATORY FAILURE [None]
